FAERS Safety Report 20647469 (Version 2)
Quarter: 2022Q2

REPORT INFORMATION
  Report Type: Report from Study
  Country: CZ (occurrence: CZ)
  Receive Date: 20220329
  Receipt Date: 20220419
  Transmission Date: 20220721
  Serious: Yes (Hospitalization, Other)
  Sender: FDA-Public Use
  Company Number: CZ-NOVARTISPH-NVSC2020CZ324880

PATIENT
  Age: 4 Year
  Sex: Male
  Weight: 17 kg

DRUGS (3)
  1. TRAMETINIB [Suspect]
     Active Substance: TRAMETINIB
     Indication: Astrocytoma, low grade
     Dosage: 0.57 MG, QD
     Route: 048
     Dates: start: 20191218
  2. SUMETROLIN [Concomitant]
     Indication: Antifungal prophylaxis
     Dosage: 130 MG, BID
     Route: 065
  3. VIGANTOL [Concomitant]
     Indication: Prophylaxis
     Dosage: 2 DRP, QD
     Route: 065

REACTIONS (7)
  - Lymphadenitis [Recovered/Resolved]
  - Amylase increased [Recovered/Resolved]
  - Hyperpyrexia [Recovered/Resolved]
  - Hyperpyrexia [Recovered/Resolved]
  - Localised infection [Unknown]
  - COVID-19 [Recovered/Resolved]
  - Pyrexia [Recovered/Resolved]

NARRATIVE: CASE EVENT DATE: 20201129
